FAERS Safety Report 11130749 (Version 1)
Quarter: 2015Q2

REPORT INFORMATION
  Report Type: Spontaneous
  Country: US (occurrence: None)
  Receive Date: 20150520
  Receipt Date: 20150520
  Transmission Date: 20150821
  Serious: Yes (Life-Threatening, Hospitalization)
  Sender: FDA-Public Use
  Company Number: 2015/048

PATIENT
  Age: 24 Month
  Sex: Female

DRUGS (2)
  1. MEMANTINE [Suspect]
     Active Substance: MEMANTINE
  2. DONEPEZIL [Suspect]
     Active Substance: DONEPEZIL

REACTIONS (9)
  - Eye movement disorder [None]
  - Agitation [None]
  - Accidental exposure to product by child [None]
  - Accidental overdose [None]
  - Encephalopathy [None]
  - Lethargy [None]
  - Hallucination, visual [None]
  - Dystonia [None]
  - Respiratory rate increased [None]
